FAERS Safety Report 8580008-5 (Version None)
Quarter: 2012Q3

REPORT INFORMATION
  Report Type: 
  Country: None (occurrence: None)
  Receive Date: 20120808
  Receipt Date: 20120705
  Transmission Date: 20120928
  Serious: No
  Sender: FDA-Public Use
  Company Number: US-ASTRAZENECA-2012SE45772

PATIENT
  Sex: Female

DRUGS (4)
  1. SYMBICORT [Suspect]
     Dosage: FREQUENCY UNKNOWN
     Route: 055
  2. PREDNISONE TAB [Concomitant]
     Indication: MULTIPLE SCLEROSIS
  3. SEROQUEL [Suspect]
     Indication: BIPOLAR DISORDER
     Route: 048
  4. ANTIPSYCHOTIC MEDICATION [Concomitant]

REACTIONS (7)
  - MANIA [None]
  - CHRONIC OBSTRUCTIVE PULMONARY DISEASE [None]
  - ASTHMA [None]
  - INSOMNIA [None]
  - DRUG DOSE OMISSION [None]
  - HALLUCINATION [None]
  - RESTLESS LEGS SYNDROME [None]
